FAERS Safety Report 14519970 (Version 1)
Quarter: 2018Q1

REPORT INFORMATION
  Report Type: Spontaneous
  Country: NO (occurrence: NO)
  Receive Date: 20180212
  Receipt Date: 20180212
  Transmission Date: 20180509
  Serious: Yes (Other)
  Sender: FDA-Public Use
  Company Number: NO-009507513-1802NOR001151

PATIENT
  Age: 43 Year
  Sex: Female

DRUGS (8)
  1. TEMOZOLOMIDE. [Suspect]
     Active Substance: TEMOZOLOMIDE
     Indication: METASTATIC NEOPLASM
     Dosage: UNK
     Route: 048
  2. CAPECITABINE. [Suspect]
     Active Substance: CAPECITABINE
     Indication: PRODUCT USED FOR UNKNOWN INDICATION
     Dosage: UNK
     Route: 065
  3. CAPECITABINE. [Suspect]
     Active Substance: CAPECITABINE
     Indication: METASTATIC NEOPLASM
     Dosage: UNK
  4. INSULIN [Concomitant]
     Active Substance: INSULIN NOS
     Dosage: 42?50 IU DAILY, GIVEN AS FOUR BOLUS DOSES AT MEALTIMES AND ONE BASAL DOSE AT BEDTIME
     Route: 040
  5. INSULIN [Concomitant]
     Active Substance: INSULIN NOS
     Dosage: BASAL/BOLUS REGIME OF 34 IU INSULIN DAILY
  6. INSULIN [Concomitant]
     Active Substance: INSULIN NOS
     Dosage: 28 IU DAILY
  7. INSULIN [Concomitant]
     Active Substance: INSULIN NOS
     Dosage: MEALTIME BOLUS DOSES WERE GRADUALLY REDUCED TO A TOTAL OF 8 IU PER DAY
  8. TEMOZOLOMIDE. [Suspect]
     Active Substance: TEMOZOLOMIDE
     Dosage: UNK
     Route: 048

REACTIONS (3)
  - Coeliac disease [Recovering/Resolving]
  - Off label use [Unknown]
  - Product use in unapproved indication [Unknown]
